FAERS Safety Report 6649040-2 (Version None)
Quarter: 2010Q1

REPORT INFORMATION
  Report Type: 
  Country: None (occurrence: None)
  Receive Date: 20100324
  Receipt Date: 20100317
  Transmission Date: 20100710
  Serious: Yes (Hospitalization, Other)
  Sender: FDA-Public Use
  Company Number: FR-PURDUE-GBR-2010-0006302

PATIENT
  Sex: Male

DRUGS (12)
  1. OXYCONTIN [Suspect]
     Indication: CANCER PAIN
     Dosage: 100 MG, BID
     Route: 048
     Dates: start: 20100114, end: 20100122
  2. OXYNORM CAPSULES 20 MG [Suspect]
     Indication: CANCER PAIN
     Dosage: UNK CAPSL, UNK
     Route: 048
     Dates: start: 20100114, end: 20100120
  3. NEURONTIN [Suspect]
     Indication: PAIN
     Dosage: 300 MG, DAILY
     Route: 048
     Dates: start: 20100112, end: 20100120
  4. AMITRIPTYLINE HCL [Suspect]
     Indication: PAIN
     Dosage: 5 MG, DAILY
     Route: 048
     Dates: start: 20011212
  5. XANAX [Suspect]
     Indication: DRUG USE FOR UNKNOWN INDICATION
     Dosage: 0.50 MG, DAILY
     Route: 048
     Dates: start: 20100114, end: 20100118
  6. ATARAX [Suspect]
     Indication: DRUG USE FOR UNKNOWN INDICATION
     Dosage: 25 MG, DAILY
     Route: 048
  7. TEMESTA                            /00273201/ [Suspect]
     Indication: DRUG USE FOR UNKNOWN INDICATION
     Dosage: 1 MG, TID
     Route: 048
  8. EZETROL [Concomitant]
     Dosage: 10 MG, NOCTE
     Route: 065
     Dates: start: 20100112
  9. SPECIAFOLDINE [Concomitant]
     Indication: MICROCYTIC ANAEMIA
     Dosage: 0.4 MG, DAILY
     Route: 065
  10. TARDYFERON                         /00023503/ [Concomitant]
     Indication: MICROCYTIC ANAEMIA
     Dosage: 1 UNK, DAILY
  11. LARGACTIL                          /00011902/ [Concomitant]
     Indication: HICCUPS
     Dosage: UNK
     Dates: start: 20100114, end: 20100115
  12. LASIX [Concomitant]
     Indication: POLYURIA
     Dosage: 40 MG, THRICE

REACTIONS (2)
  - ANAEMIA [None]
  - CONFUSIONAL STATE [None]
